FAERS Safety Report 20103065 (Version 1)
Quarter: 2021Q4

REPORT INFORMATION
  Report Type: Spontaneous
  Country: US (occurrence: US)
  Receive Date: 20211123
  Receipt Date: 20211123
  Transmission Date: 20220303
  Serious: Yes (Other)
  Sender: FDA-Public Use
  Company Number: US-IGSA-BIG0016710

PATIENT
  Age: 51 Year
  Sex: Male
  Weight: 88.435 kg

DRUGS (4)
  1. GAMUNEX-C [Suspect]
     Active Substance: HUMAN IMMUNOGLOBULIN G
     Indication: Small fibre neuropathy
     Dosage: 100 GRAMS OVER 4 DAYS
     Route: 042
     Dates: start: 20211029, end: 20211101
  2. GAMUNEX-C [Suspect]
     Active Substance: HUMAN IMMUNOGLOBULIN G
     Indication: Polyneuropathy
     Dosage: UNK
  3. PFIZER-BIONTECH COVID-19 VACCINE [Suspect]
     Active Substance: TOZINAMERAN
     Indication: Immunisation
  4. UNSPECIFIED INGREDIENT [Concomitant]
     Active Substance: UNSPECIFIED INGREDIENT
     Indication: Premedication

REACTIONS (5)
  - Tendonitis [Recovered/Resolved]
  - Fatigue [Unknown]
  - Haemolysis [Unknown]
  - Jaundice [Unknown]
  - Phlebitis [Unknown]

NARRATIVE: CASE EVENT DATE: 20211029
